FAERS Safety Report 16022729 (Version 1)
Quarter: 2019Q1

REPORT INFORMATION
  Report Type: Spontaneous
  Country: US (occurrence: US)
  Receive Date: 20190202
  Receipt Date: 20190202
  Transmission Date: 20190418
  Serious: Yes (Other)
  Sender: FDA-Public Use
  Company Number: None

PATIENT
  Age: 42 Year
  Sex: Female

DRUGS (4)
  1. MONTELUKAST [Concomitant]
     Active Substance: MONTELUKAST SODIUM
  2. OSELTAMIVIR [Concomitant]
     Active Substance: OSELTAMIVIR
  3. SOLIRIS [Suspect]
     Active Substance: ECULIZUMAB
     Indication: ORGAN TRANSPLANT
     Dosage: 900MG EVERY 2 WEEKS INTRAVENOUSLY??02-JUN-201- TO ONGOING
     Route: 042
  4. ESCITALOPRAM [Concomitant]
     Active Substance: ESCITALOPRAM OXALATE

REACTIONS (2)
  - Rash [None]
  - Pruritus [None]

NARRATIVE: CASE EVENT DATE: 20190115
